FAERS Safety Report 7248274-6 (Version None)
Quarter: 2011Q1

REPORT INFORMATION
  Report Type: 
  Country: None (occurrence: None)
  Receive Date: 20110127
  Receipt Date: 20101213
  Transmission Date: 20110831
  Serious: Yes (Other)
  Sender: FDA-Public Use
  Company Number: US-BAXTER-2010BH003739

PATIENT
  Age: 61 Year
  Sex: Male
  Weight: 81 kg

DRUGS (28)
  1. CLONIDINE [Concomitant]
     Indication: PRODUCT USED FOR UNKNOWN INDICATION
     Route: 048
  2. DOLOPHINE HCL [Concomitant]
     Indication: PRODUCT USED FOR UNKNOWN INDICATION
     Route: 048
  3. TAMSULOSIN HCL [Concomitant]
     Indication: PRODUCT USED FOR UNKNOWN INDICATION
     Route: 048
  4. BACTRIM DS [Concomitant]
     Indication: PRODUCT USED FOR UNKNOWN INDICATION
     Route: 048
  5. LIDOCAINE HYDROCHLORIDE IN PLASTIC CONTAINER [Concomitant]
     Route: 061
  6. SODIUM PHOSPHATE MONOBASIC [Concomitant]
     Indication: PRODUCT USED FOR UNKNOWN INDICATION
     Route: 065
  7. MILK OF MAGNESIA TAB [Concomitant]
     Indication: PRODUCT USED FOR UNKNOWN INDICATION
     Route: 048
  8. POTASSIUM CHLORIDE [Concomitant]
     Indication: PRODUCT USED FOR UNKNOWN INDICATION
     Route: 065
  9. AMLODIPINE [Concomitant]
     Indication: PRODUCT USED FOR UNKNOWN INDICATION
     Route: 048
  10. WARFARIN SODIUM [Concomitant]
     Route: 048
  11. LIDOCAINE HYDROCHLORIDE IN PLASTIC CONTAINER [Concomitant]
     Indication: PAIN
     Route: 061
  12. HEPARIN SODIUM 5,000 UNITS IN DEXTROSE 5% [Suspect]
     Indication: ARTERIAL OCCLUSIVE DISEASE
     Route: 041
     Dates: start: 20071108, end: 20071114
  13. BETASEPT                                /USA/ [Concomitant]
     Indication: PRODUCT USED FOR UNKNOWN INDICATION
     Route: 061
  14. AMBIEN [Concomitant]
     Indication: PRODUCT USED FOR UNKNOWN INDICATION
     Route: 065
  15. LOVENOX [Concomitant]
     Indication: PRODUCT USED FOR UNKNOWN INDICATION
     Route: 058
  16. ACETAMINOPHEN AND HYDROCODONE BITARTRATE [Concomitant]
     Indication: PRODUCT USED FOR UNKNOWN INDICATION
     Dates: start: 20100406
  17. NORCO [Concomitant]
     Indication: PAIN
     Route: 048
  18. HEPARIN SODIUM INJECTION [Suspect]
     Indication: ARTERIOGRAM
     Route: 042
     Dates: start: 20071116, end: 20071116
  19. CLOPIDOGREL [Concomitant]
     Indication: PRODUCT USED FOR UNKNOWN INDICATION
     Route: 048
  20. PHENERGAN [Concomitant]
     Indication: PRODUCT USED FOR UNKNOWN INDICATION
     Route: 065
  21. RIFAMPIN [Concomitant]
     Indication: PRODUCT USED FOR UNKNOWN INDICATION
     Route: 048
  22. DOXYCYCLINE [Concomitant]
     Indication: PRODUCT USED FOR UNKNOWN INDICATION
     Route: 048
  23. HEPARIN SODIUM 5,000 UNITS IN DEXTROSE 5% [Suspect]
     Indication: THROMBOSIS
     Route: 041
     Dates: start: 20071108, end: 20071114
  24. VIAGRA [Concomitant]
     Indication: PRODUCT USED FOR UNKNOWN INDICATION
     Route: 048
  25. ASA [Concomitant]
     Indication: PRODUCT USED FOR UNKNOWN INDICATION
     Route: 048
  26. WARFARIN SODIUM [Concomitant]
     Indication: PRODUCT USED FOR UNKNOWN INDICATION
     Route: 048
  27. TYLENOL-500 [Concomitant]
     Indication: PRODUCT USED FOR UNKNOWN INDICATION
     Route: 048
  28. VITAMIN B-12 [Concomitant]
     Indication: PRODUCT USED FOR UNKNOWN INDICATION
     Route: 065

REACTIONS (28)
  - CELLULITIS GANGRENOUS [None]
  - CELLULITIS [None]
  - OEDEMA PERIPHERAL [None]
  - VOMITING [None]
  - OSTEOMYELITIS ACUTE [None]
  - HAEMATOCHEZIA [None]
  - COUGH [None]
  - ABDOMINAL PAIN [None]
  - IMPAIRED HEALING [None]
  - NAUSEA [None]
  - DYSPNOEA [None]
  - WOUND DEHISCENCE [None]
  - VASCULAR INSUFFICIENCY [None]
  - VISION BLURRED [None]
  - HEADACHE [None]
  - STAPHYLOCOCCAL INFECTION [None]
  - ATELECTASIS [None]
  - BLOOD PRESSURE INCREASED [None]
  - HEPARIN-INDUCED THROMBOCYTOPENIA TEST POSITIVE [None]
  - GANGRENE [None]
  - POST PROCEDURAL INFECTION [None]
  - FEELING COLD [None]
  - DEEP VEIN THROMBOSIS [None]
  - CHEST PAIN [None]
  - ASTHENIA [None]
  - HYPOKINESIA [None]
  - PAIN [None]
  - HYPERHIDROSIS [None]
